FAERS Safety Report 13421503 (Version 2)
Quarter: 2018Q2

REPORT INFORMATION
  Report Type: Spontaneous
  Country: SE (occurrence: SE)
  Receive Date: 20170410
  Receipt Date: 20180404
  Transmission Date: 20180711
  Serious: Yes (Other)
  Sender: FDA-Public Use
  Company Number: SE-ROCHE-1916368

PATIENT
  Age: 23 Year
  Sex: Female

DRUGS (2)
  1. LUCENTIS [Suspect]
     Active Substance: RANIBIZUMAB
     Indication: DIABETIC RETINAL OEDEMA
     Dosage: UNK
     Route: 065
     Dates: start: 20170103
  2. LUCENTIS [Suspect]
     Active Substance: RANIBIZUMAB
     Dosage: UNK
     Route: 065
     Dates: start: 20170131, end: 20170131

REACTIONS (3)
  - Diabetic retinal oedema [Unknown]
  - Diabetic retinopathy [Unknown]
  - Maternal exposure during pregnancy [Unknown]
